FAERS Safety Report 10961050 (Version 1)
Quarter: 2015Q1

REPORT INFORMATION
  Report Type: Spontaneous
  Country: GB (occurrence: GB)
  Receive Date: 20150327
  Receipt Date: 20150327
  Transmission Date: 20150721
  Serious: Yes (Other)
  Sender: FDA-Public Use
  Company Number: GB-CIPLA LTD.-2015GB02194

PATIENT

DRUGS (4)
  1. SERTRALINE [Suspect]
     Active Substance: SERTRALINE HYDROCHLORIDE
     Dosage: UNK
  2. AMOXCILLIN [Concomitant]
     Dosage: 3 DOSE, DAILY
     Dates: start: 20141224, end: 20141231
  3. KETOCONAZOLE. [Concomitant]
     Active Substance: KETOCONAZOLE
     Dosage: 2 DOSE, ONCE WEEKLY
     Dates: start: 20121130
  4. SERTRALINE [Suspect]
     Active Substance: SERTRALINE HYDROCHLORIDE
     Dosage: 1 DOSE DAILY
     Dates: start: 20150203, end: 20150204

REACTIONS (4)
  - Condition aggravated [Recovered/Resolved]
  - Intentional self-injury [Recovered/Resolved]
  - Mood altered [Recovered/Resolved]
  - Affective disorder [Recovered/Resolved]

NARRATIVE: CASE EVENT DATE: 20150216
